FAERS Safety Report 6819843-X (Version None)
Quarter: 2010Q3

REPORT INFORMATION
  Report Type: 
  Country: None (occurrence: None)
  Receive Date: 20100707
  Receipt Date: 20100630
  Transmission Date: 20110219
  Serious: Yes (Other)
  Sender: FDA-Public Use
  Company Number: GB-ASTRAZENECA-2010SE17819

PATIENT
  Age: 59 Year
  Sex: Male
  Weight: 84 kg

DRUGS (3)
  1. SEROQUEL [Suspect]
     Indication: BIPOLAR DISORDER
     Route: 048
     Dates: start: 20080821, end: 20100501
  2. OMEPRAZOLE [Concomitant]
     Indication: GASTROOESOPHAGEAL REFLUX DISEASE
     Route: 048
     Dates: start: 20100319
  3. THIAMINE [Concomitant]
     Indication: ALCOHOL ABUSE
     Route: 048
     Dates: start: 20100122, end: 20100201

REACTIONS (1)
  - NEUTROPENIA [None]
